FAERS Safety Report 6521766-0 (Version None)
Quarter: 2009Q4

REPORT INFORMATION
  Report Type: 
  Country: None (occurrence: None)
  Receive Date: 20091222
  Receipt Date: 20091211
  Transmission Date: 20100525
  Serious: Yes (Hospitalization)
  Sender: FDA-Public Use
  Company Number: SPV1-2009-02560

PATIENT
  Sex: Male

DRUGS (3)
  1. ELAPRASE [Suspect]
     Dosage: 0.5 MG/KG, UNK, IV DRIP
     Route: 041
  2. BENADRYL [Concomitant]
  3. CORTICOSTEROIDS [Concomitant]

REACTIONS (2)
  - DRUG HYPERSENSITIVITY [None]
  - INFUSION RELATED REACTION [None]
